FAERS Safety Report 5431091-7 (Version None)
Quarter: 2007Q3

REPORT INFORMATION
  Report Type: 
  Country: None (occurrence: None)
  Receive Date: 20070830
  Receipt Date: 20070222
  Transmission Date: 20080115
  Serious: No
  Sender: FDA-Public Use
  Company Number: A0639026A

PATIENT
  Age: 46 Year
  Sex: Female
  Weight: 77.3 kg

DRUGS (1)
  1. WELLBUTRIN XL [Suspect]
     Indication: ENERGY INCREASED
     Dosage: 300MG PER DAY
     Route: 048
     Dates: start: 20060901

REACTIONS (1)
  - INSOMNIA [None]
